FAERS Safety Report 14843012 (Version 2)
Quarter: 2018Q2

REPORT INFORMATION
  Report Type: Spontaneous
  Country: US (occurrence: US)
  Receive Date: 20180503
  Receipt Date: 20180529
  Transmission Date: 20180711
  Serious: No
  Sender: FDA-Public Use
  Company Number: US-GLAXOSMITHKLINE-US2018GSK076281

PATIENT
  Sex: Female
  Weight: 80.73 kg

DRUGS (1)
  1. NUCALA [Suspect]
     Active Substance: MEPOLIZUMAB
     Indication: ASTHMA
     Dosage: 100 MG, UNK
     Route: 058
     Dates: start: 20180320

REACTIONS (4)
  - Throat irritation [Unknown]
  - Oral pruritus [Unknown]
  - Adverse reaction [Recovering/Resolving]
  - Wheezing [Unknown]
